FAERS Safety Report 12683685 (Version 2)
Quarter: 2016Q4

REPORT INFORMATION
  Report Type: Spontaneous
  Country: NL (occurrence: NL)
  Receive Date: 20160825
  Receipt Date: 20161109
  Transmission Date: 20170207
  Serious: Yes (Other)
  Sender: FDA-Public Use
  Company Number: NL-ASTRAZENECA-2016SE89417

PATIENT
  Age: 773 Month
  Sex: Female
  Weight: 65 kg

DRUGS (4)
  1. ACENOCOUMAROL [Concomitant]
     Active Substance: ACENOCOUMAROL
  2. FASLODEX [Suspect]
     Active Substance: FULVESTRANT
     Indication: CHEMOTHERAPY
     Route: 030
     Dates: start: 201605, end: 201607
  3. FLUOXETINE [Concomitant]
     Active Substance: FLUOXETINE HYDROCHLORIDE
     Dates: start: 20140510
  4. OXAZEPAM. [Concomitant]
     Active Substance: OXAZEPAM
     Dates: start: 20160707

REACTIONS (5)
  - Cataract [Not Recovered/Not Resolved]
  - Visual acuity reduced [Not Recovered/Not Resolved]
  - Blindness unilateral [Not Recovered/Not Resolved]
  - Paraneoplastic retinopathy [Not Recovered/Not Resolved]
  - Photopsia [Not Recovered/Not Resolved]

NARRATIVE: CASE EVENT DATE: 201605
